FAERS Safety Report 4963551-7 (Version None)
Quarter: 2006Q1

REPORT INFORMATION
  Report Type: 
  Country: None (occurrence: None)
  Receive Date: 20060330
  Receipt Date: 20060321
  Transmission Date: 20060701
  Serious: Yes (Hospitalization)
  Sender: FDA-Public Use
  Company Number: 2006040902

PATIENT
  Age: 79 Year
  Sex: Male

DRUGS (9)
  1. DELTACORTRIL [Suspect]
     Indication: ILL-DEFINED DISORDER
     Dosage: 15 MG (15 MG, 1 IN 1 D) ORAL
     Route: 048
  2. ETANERCEPT (ETANERCEPT) [Suspect]
     Indication: ILL-DEFINED DISORDER
     Dosage: 50 MG (50 MG, 1 IN 1 D), SUBCUTANEOUS
     Route: 058
     Dates: end: 20060128
  3. ARAVA [Suspect]
     Indication: ILL-DEFINED DISORDER
     Dosage: 20 MG (20 MG, 1 IN 1 D), ORAL
     Route: 048
  4. DILTIAZEM HYDROCHLORIDE [Concomitant]
  5. FOSAMAX [Concomitant]
  6. CALCICHEW-D3 (CALCIUM CARBONATE, COLECALCIFEROL) [Concomitant]
  7. NEXIUM [Concomitant]
  8. DICLOFENAC SODIUM [Concomitant]
  9. FUROSEMIDE (FOROSEMIDE) [Concomitant]

REACTIONS (2)
  - CARDIAC FAILURE [None]
  - PNEUMONIA [None]
